FAERS Safety Report 7377303-4 (Version None)
Quarter: 2011Q1

REPORT INFORMATION
  Report Type: 
  Country: None (occurrence: None)
  Receive Date: 20110316
  Receipt Date: 20110302
  Transmission Date: 20110831
  Serious: Yes (Hospitalization)
  Sender: FDA-Public Use
  Company Number: WAES 1103USA01770

PATIENT
  Age: 45 Year
  Sex: Female

DRUGS (2)
  1. DECADRON [Suspect]
     Indication: FEBRILE NEUTROPENIA
     Dosage: 80 MG
     Route: 048
     Dates: start: 20100722, end: 20100727
  2. CAP VORINOSTAT [Suspect]
     Indication: MULTIPLE MYELOMA
     Dosage: 400 MG/DAILY
     Route: 048
     Dates: start: 20100401, end: 20100704

REACTIONS (8)
  - FEBRILE NEUTROPENIA [None]
  - OESOPHAGITIS [None]
  - BRONCHOPNEUMONIA [None]
  - ELECTROLYTE IMBALANCE [None]
  - MUCOSAL INFLAMMATION [None]
  - DIARRHOEA [None]
  - MULTIPLE MYELOMA [None]
  - NEOPLASM MALIGNANT [None]
